FAERS Safety Report 8273253 (Version 4)
Quarter: 2015Q4

REPORT INFORMATION
  Report Type: Spontaneous
  Country: JP (occurrence: JP)
  Receive Date: 20111202
  Receipt Date: 20151221
  Transmission Date: 20160305
  Serious: Yes (Hospitalization)
  Sender: FDA-Public Use
  Company Number: PHHY2011JP103713

PATIENT
  Age: 31 Year
  Sex: Female

DRUGS (4)
  1. CARBAMAZEPINE. [Interacting]
     Active Substance: CARBAMAZEPINE
     Dosage: 3 G, QD
     Route: 048
  2. PHENOBARBITAL. [Interacting]
     Active Substance: PHENOBARBITAL
     Indication: EPILEPSY
     Route: 048
  3. CARBAMAZEPINE. [Interacting]
     Active Substance: CARBAMAZEPINE
     Indication: SUICIDAL BEHAVIOUR
     Dosage: 3 G
     Route: 048
  4. ACETAMINOPHEN. [Suspect]
     Active Substance: ACETAMINOPHEN
     Dosage: 20 MG
     Route: 048

REACTIONS (10)
  - Suicide attempt [Unknown]
  - Hyperammonaemia [Unknown]
  - Hepatic encephalopathy [Unknown]
  - Generalised tonic-clonic seizure [Recovered/Resolved]
  - Toxicity to various agents [Recovering/Resolving]
  - Acute hepatic failure [Unknown]
  - Hepatic enzyme increased [Unknown]
  - Altered state of consciousness [Recovering/Resolving]
  - Coagulopathy [Unknown]
  - Drug interaction [Unknown]
